FAERS Safety Report 5206415-6 (Version None)
Quarter: 2007Q1

REPORT INFORMATION
  Report Type: 
  Country: None (occurrence: None)
  Receive Date: 20070111
  Receipt Date: 20070104
  Transmission Date: 20070707
  Serious: Yes (Life-Threatening, Other)
  Sender: FDA-Public Use
  Company Number: US-PFIZER INC-2006105132

PATIENT
  Sex: Female
  Weight: 59 kg

DRUGS (18)
  1. TIKOSYN [Suspect]
     Indication: ATRIAL FIBRILLATION
     Route: 048
  2. CLONIDINE [Suspect]
     Indication: HYPERTENSION
     Dates: start: 20060819, end: 20060819
  3. CUMADIN [Concomitant]
     Route: 048
  4. LIPITOR [Concomitant]
     Route: 048
  5. LANOXIN [Concomitant]
     Route: 048
  6. ISOSORBIDE [Concomitant]
  7. SOTALOL HYDROCHLORIDE [Concomitant]
     Route: 048
  8. POTASSIUM ACETATE [Concomitant]
  9. FUROSEMIDE [Concomitant]
  10. STOOL SOFTENER [Concomitant]
  11. CRANBERRY [Concomitant]
  12. VITAMIN B6 [Concomitant]
  13. FOLIC ACID [Concomitant]
  14. BIOTIN [Concomitant]
  15. COLACE [Concomitant]
     Route: 048
  16. ASPIRIN [Concomitant]
  17. NITROFURANTOIN [Concomitant]
     Route: 048
  18. ATENOLOL [Concomitant]
     Route: 048

REACTIONS (7)
  - BLOOD PRESSURE DECREASED [None]
  - BLOOD PRESSURE INCREASED [None]
  - DIZZINESS [None]
  - DRUG INEFFECTIVE [None]
  - FATIGUE [None]
  - URINARY TRACT INFECTION [None]
  - WEIGHT INCREASED [None]
